FAERS Safety Report 9291678 (Version 4)
Quarter: 2013Q4

REPORT INFORMATION
  Report Type: Not Available
  Country: US (occurrence: US)
  Receive Date: 20130515
  Receipt Date: 20131205
  Transmission Date: 20140711
  Serious: Yes (Death, Hospitalization)
  Sender: FDA-Public Use
  Company Number: US-VIROPHARMA INCORPORATED-20130425CINRY4189

PATIENT
  Age: 32 Year
  Sex: Female
  Weight: 67.19 kg

DRUGS (15)
  1. CINRYZE (C1 ESTERASE INHIBITOR (HUMAN)) [Suspect]
     Indication: HEREDITARY ANGIOEDEMA
     Route: 042
     Dates: start: 201303
  2. CINRYZE (C1 ESTERASE INHIBITOR (HUMAN)) [Suspect]
     Indication: PROPHYLAXIS
  3. DILAUDID [Suspect]
     Indication: ABDOMINAL PAIN
     Dosage: 2 TO 4 MG
     Route: 048
  4. DILAUDID [Suspect]
     Indication: HEREDITARY ANGIOEDEMA
     Dosage: UNKNOWN
     Route: 042
  5. ACTIQ [Suspect]
     Indication: PAIN
     Dosage: UNKNOWN
     Route: 048
  6. ACTIQ [Suspect]
     Indication: ABDOMINAL PAIN
     Dosage: UNKNOWN
     Route: 048
  7. BENADRYL [Suspect]
     Indication: ABDOMINAL PAIN
     Dosage: UNKNOWN
     Route: 048
  8. BENADRYL [Suspect]
     Indication: PROPHYLAXIS
  9. PHENERGAN [Suspect]
     Indication: PROPHYLAXIS
     Dosage: UNKNOWN
     Route: 048
  10. KLONOPIN [Concomitant]
     Indication: SLEEP DISORDER
     Dosage: UNKNOWN
     Route: 048
  11. SYNTHROID [Concomitant]
     Indication: HYPOTHYROIDISM
     Route: 065
  12. FIRAZYR [Concomitant]
     Indication: HEREDITARY ANGIOEDEMA
     Dosage: UNKNOWN
     Route: 042
  13. AMBIEN [Concomitant]
     Indication: SLEEP DISORDER
     Dosage: UNKNOWN
     Route: 048
  14. COLACE [Concomitant]
     Indication: CONSTIPATION
     Dosage: UNKNOWN
     Route: 048
  15. BERINERT [Concomitant]
     Indication: HEREDITARY ANGIOEDEMA
     Dosage: UNKNOWN
     Route: 042

REACTIONS (6)
  - Completed suicide [Fatal]
  - Overdose [Fatal]
  - Hereditary angioedema [Recovered/Resolved]
  - Tooth abscess [Recovered/Resolved]
  - Drug ineffective [Not Recovered/Not Resolved]
  - Drug intolerance [Not Recovered/Not Resolved]
